FAERS Safety Report 7637665-7 (Version None)
Quarter: 2011Q3

REPORT INFORMATION
  Report Type: 
  Country: None (occurrence: None)
  Receive Date: 20110726
  Receipt Date: 20110512
  Transmission Date: 20111222
  Serious: No
  Sender: FDA-Public Use
  Company Number: US-AMGEN-USASP2011025208

PATIENT
  Sex: Male

DRUGS (1)
  1. PROCRIT [Suspect]
     Indication: ANAEMIA
     Dosage: 40000 IU, Q3WK
     Route: 058

REACTIONS (1)
  - INJECTION SITE HAEMATOMA [None]
